FAERS Safety Report 20965632 (Version 1)
Quarter: 2022Q2

REPORT INFORMATION
  Report Type: Other
  Country: IN (occurrence: None)
  Receive Date: 20220616
  Receipt Date: 20220616
  Transmission Date: 20220721
  Serious: Yes (Other)
  Sender: FDA-Public Use
  Company Number: IN-ROCHE-3096413

PATIENT
  Age: 13 Year
  Sex: Female
  Weight: 28 kg

DRUGS (1)
  1. EVRYSDI [Suspect]
     Active Substance: RISDIPLAM
     Indication: Spinal muscular atrophy
     Route: 048
     Dates: start: 20220310

REACTIONS (2)
  - Scoliosis [Unknown]
  - Scoliosis [Unknown]

NARRATIVE: CASE EVENT DATE: 20220512
